FAERS Safety Report 4385511-X (Version None)
Quarter: 2004Q2

REPORT INFORMATION
  Report Type: 
  Country: None (occurrence: None)
  Receive Date: 20040622
  Receipt Date: 20040609
  Transmission Date: 20050107
  Serious: Yes (Hospitalization)
  Sender: FDA-Public Use
  Company Number: HQWYE486416JUN04

PATIENT
  Age: 42 Year
  Sex: Female

DRUGS (10)
  1. RAPAMUNE [Suspect]
     Indication: PROPHYLAXIS AGAINST TRANSPLANT REJECTION
     Dosage: 5 MG 1X PER 1 DAY
     Dates: start: 20040316
  2. TACROLIMUS (TACROLIMUS) [Concomitant]
  3. PREDNISONE TAB [Concomitant]
  4. PEPCID [Concomitant]
  5. NYSTATIN [Concomitant]
  6. SEPTRA [Concomitant]
  7. VALCYTE [Concomitant]
  8. MULTIVITAMINS, PLAIN (MULTIVITAMINS, PLAIN) [Concomitant]
  9. COLACE (DOCUSATE SODIUM) [Concomitant]
  10. PERCOCET [Concomitant]

REACTIONS (14)
  - BODY TEMPERATURE INCREASED [None]
  - COMPLICATIONS OF TRANSPLANTED KIDNEY [None]
  - DISCOMFORT [None]
  - HYPOKALAEMIA [None]
  - INCISION SITE COMPLICATION [None]
  - LYMPHOCELE [None]
  - OEDEMA PERIPHERAL [None]
  - PITTING OEDEMA [None]
  - POST PROCEDURAL COMPLICATION [None]
  - PULMONARY CONGESTION [None]
  - RENAL TUBULAR NECROSIS [None]
  - TENDERNESS [None]
  - URINE OUTPUT DECREASED [None]
  - WEIGHT INCREASED [None]
